FAERS Safety Report 5627669-8 (Version None)
Quarter: 2008Q1

REPORT INFORMATION
  Report Type: 
  Country: None (occurrence: None)
  Receive Date: 20080215
  Receipt Date: 20070725
  Transmission Date: 20080703
  Serious: Yes (Hospitalization, Other)
  Sender: FDA-Public Use
  Company Number: CA-PURDUE-CAN_2007_0000462

PATIENT
  Age: 42 Year
  Sex: Male

DRUGS (2)
  1. OXYCONTIN TABLETS 40 MG [Suspect]
     Indication: DRUG USE FOR UNKNOWN INDICATION
     Dosage: 200 MG, UNK
     Route: 048
  2. ALCOHOL [Suspect]
     Indication: DRUG USE FOR UNKNOWN INDICATION
     Route: 048

REACTIONS (3)
  - CYANOSIS [None]
  - LOSS OF CONSCIOUSNESS [None]
  - SUBSTANCE ABUSE [None]
